FAERS Safety Report 7418404-1 (Version None)
Quarter: 2011Q2

REPORT INFORMATION
  Report Type: 
  Country: None (occurrence: None)
  Receive Date: 20110415
  Receipt Date: 20110412
  Transmission Date: 20111010
  Serious: Yes (Other)
  Sender: FDA-Public Use
  Company Number: US-PFIZER INC-2011047876

PATIENT
  Sex: Female

DRUGS (3)
  1. LYRICA [Suspect]
     Indication: FIBROMYALGIA
     Dosage: 75 MG, 3X/DAY
     Route: 048
     Dates: start: 20101001, end: 20110224
  2. CYMBALTA [Suspect]
     Indication: DEPRESSION
     Dosage: UNK
     Dates: start: 20100801
  3. CYMBALTA [Suspect]
     Indication: BONE PAIN

REACTIONS (7)
  - EUPHORIC MOOD [None]
  - CONTUSION [None]
  - MANIA [None]
  - INSOMNIA [None]
  - BIPOLAR DISORDER [None]
  - DECREASED APPETITE [None]
  - NIGHT SWEATS [None]
